FAERS Safety Report 4946190-3 (Version None)
Quarter: 2006Q1

REPORT INFORMATION
  Report Type: 
  Country: None (occurrence: None)
  Receive Date: 20060118
  Receipt Date: 20050331
  Transmission Date: 20060701
  Serious: Yes (Other)
  Sender: FDA-Public Use
  Company Number: US-JNJFOC-20041204756

PATIENT
  Age: 63 Year
  Sex: Female
  Weight: 56.246 kg

DRUGS (2)
  1. DOXIL (DOXORUBICIN HYDROCHLORIDE) LIPOSME INJECTION [Suspect]
     Indication: OVARIAN CANCER
     Dosage: 64 MG X2 CYCLE
     Dates: start: 20041206, end: 20050103
  2. ANZEMET [Concomitant]

REACTIONS (2)
  - STOMATITIS [None]
  - TACHYCARDIA [None]
